FAERS Safety Report 9541426 (Version 1)
Quarter: 2013Q3

REPORT INFORMATION
  Report Type: Spontaneous
  Country: US (occurrence: None)
  Receive Date: 20130919
  Receipt Date: 20130919
  Transmission Date: 20140515
  Serious: Yes (Other)
  Sender: FDA-Public Use
  Company Number: None

PATIENT
  Age: 75 Year
  Sex: Female

DRUGS (1)
  1. FORTEO [Suspect]
     Dosage: 20 MCG DAILY SQ
     Route: 058
     Dates: start: 20130828, end: 20130909

REACTIONS (3)
  - Convulsion [None]
  - Hypoaesthesia [None]
  - Hypoaesthesia oral [None]
